FAERS Safety Report 13524013 (Version 1)
Quarter: 2017Q2

REPORT INFORMATION
  Report Type: Spontaneous
  Country: US (occurrence: US)
  Receive Date: 20170508
  Receipt Date: 20170508
  Transmission Date: 20170830
  Serious: No
  Sender: FDA-Public Use
  Company Number: US-VIFOR (INTERNATIONAL) INC.-VIT-2016-01349

PATIENT
  Age: 56 Year
  Sex: Female

DRUGS (13)
  1. VELTASSA [Suspect]
     Active Substance: PATIROMER
  2. MAGNESIUM [Concomitant]
     Active Substance: MAGNESIUM
  3. MAGNESIUM OXIDE. [Concomitant]
     Active Substance: MAGNESIUM OXIDE
  4. ESOMEPRAZOLE [Concomitant]
     Active Substance: ESOMEPRAZOLE
  5. TACROLIMUS. [Concomitant]
     Active Substance: TACROLIMUS
  6. INSULIN PUMP [Concomitant]
     Active Substance: INSULIN NOS
  7. SERTRALINE HYDROCHLORIDE. [Concomitant]
     Active Substance: SERTRALINE HYDROCHLORIDE
  8. AMLODIPINE [Concomitant]
     Active Substance: AMLODIPINE BESYLATE
  9. VELTASSA [Suspect]
     Active Substance: PATIROMER
     Indication: HYPERKALAEMIA
     Route: 048
     Dates: start: 20160219
  10. ASPIRIN. [Concomitant]
     Active Substance: ASPIRIN
  11. URSODIOL. [Concomitant]
     Active Substance: URSODIOL
  12. MULTIVITAMIN [Concomitant]
     Active Substance: VITAMINS
  13. BENAZEPRIL HYDROCHLORIDE. [Concomitant]
     Active Substance: BENAZEPRIL HYDROCHLORIDE

REACTIONS (2)
  - Inappropriate schedule of drug administration [Unknown]
  - Constipation [Unknown]

NARRATIVE: CASE EVENT DATE: 201602
